FAERS Safety Report 24165769 (Version 1)
Quarter: 2024Q3

REPORT INFORMATION
  Report Type: Spontaneous
  Country: UG (occurrence: UG)
  Receive Date: 20240802
  Receipt Date: 20240802
  Transmission Date: 20241016
  Serious: Yes (Hospitalization)
  Sender: NOVITIUM PHARMA
  Company Number: UG-NOVITIUMPHARMA-2024UGNVP01452

PATIENT
  Age: 19 Year
  Sex: Female

DRUGS (2)
  1. ACYCLOVIR [Suspect]
     Active Substance: ACYCLOVIR
     Indication: Anogenital warts
     Route: 048
  2. EFAVIRENZ\LAMIVUDINE\TENOFOVIR DISOPROXIL FUMARATE [Concomitant]
     Active Substance: EFAVIRENZ\LAMIVUDINE\TENOFOVIR DISOPROXIL FUMARATE
     Indication: HIV infection

REACTIONS (4)
  - Intentional product misuse [Unknown]
  - Treatment noncompliance [Unknown]
  - Anaemia [Recovering/Resolving]
  - Exposure during pregnancy [Unknown]
